FAERS Safety Report 25613553 (Version 2)
Quarter: 2025Q3

REPORT INFORMATION
  Report Type: Spontaneous
  Country: US (occurrence: US)
  Receive Date: 20250728
  Receipt Date: 20250909
  Transmission Date: 20251020
  Serious: Yes (Other)
  Sender: CSL BEHRING
  Company Number: US-BEH-2025213435

PATIENT
  Age: 56 Year
  Sex: Female

DRUGS (4)
  1. HUMATE-P [Suspect]
     Active Substance: HUMAN COAGULATION FACTOR VIII/VON WILLEBRAND FACTOR COMPLEX
     Indication: Von Willebrand^s disease
     Route: 042
     Dates: start: 20250714, end: 20250715
  2. HUMATE-P [Suspect]
     Active Substance: HUMAN COAGULATION FACTOR VIII/VON WILLEBRAND FACTOR COMPLEX
     Route: 042
     Dates: start: 20250714, end: 20250714
  3. HUMATE-P [Suspect]
     Active Substance: HUMAN COAGULATION FACTOR VIII/VON WILLEBRAND FACTOR COMPLEX
     Route: 065
     Dates: start: 20250715
  4. AMLODIPINE [Concomitant]
     Active Substance: AMLODIPINE BESYLATE
     Dosage: 5 MG, QD
     Route: 065

REACTIONS (5)
  - Haemorrhage [Unknown]
  - Epistaxis [Recovered/Resolved]
  - Hyperhidrosis [Unknown]
  - Feeling hot [Unknown]
  - Product quality issue [Unknown]

NARRATIVE: CASE EVENT DATE: 20250714
